FAERS Safety Report 10213533 (Version 1)
Quarter: 2014Q2

REPORT INFORMATION
  Report Type: Spontaneous
  Country: US (occurrence: None)
  Receive Date: 20140602
  Receipt Date: 20140602
  Transmission Date: 20141212
  Serious: No
  Sender: FDA-Public Use
  Company Number: None

PATIENT
  Age: 79 Year
  Sex: Male

DRUGS (1)
  1. GAMMAGARD LIQUID [Suspect]
     Indication: GUILLAIN-BARRE SYNDROME
     Dosage: 25G IN VIAFLEX 1BAG EVERY 24 HRS INTRAVENOUS
     Route: 042
     Dates: start: 20140519, end: 20140523

REACTIONS (6)
  - Tachycardia [None]
  - Hypotension [None]
  - Flushing [None]
  - Oxygen saturation decreased [None]
  - Electrocardiogram T wave inversion [None]
  - Troponin increased [None]
